FAERS Safety Report 5800718-X (Version None)
Quarter: 2008Q3

REPORT INFORMATION
  Report Type: 
  Country: None (occurrence: None)
  Receive Date: 20080703
  Receipt Date: 20080626
  Transmission Date: 20090109
  Serious: Yes (Hospitalization)
  Sender: FDA-Public Use
  Company Number: US-GILEAD-2008-0017070

PATIENT
  Sex: Female
  Weight: 101 kg

DRUGS (15)
  1. LETAIRIS [Suspect]
     Indication: PULMONARY ARTERIAL HYPERTENSION
     Route: 048
     Dates: start: 20070717, end: 20070926
  2. FLOLAN [Concomitant]
     Route: 042
  3. REVATIO [Concomitant]
     Route: 048
  4. FUROSEMIDE [Concomitant]
     Route: 048
  5. SPIRONOLACTONE [Concomitant]
     Route: 048
  6. ALPRAZOLAM [Concomitant]
     Route: 048
  7. DOLASETRON [Concomitant]
     Indication: NAUSEA
     Route: 048
  8. DOXEPIN HCL [Concomitant]
     Route: 048
  9. FERROUS SULFATE TAB [Concomitant]
     Route: 048
  10. FLUOXETINE [Concomitant]
     Route: 048
  11. METOCLOPRAMIDE [Concomitant]
     Indication: NAUSEA
     Route: 048
  12. NYSTATIN [Concomitant]
     Dosage: 100,000 UNITS/G
     Route: 061
  13. PANTOPRAZOLE SODIUM [Concomitant]
     Route: 048
  14. PROCHLORPERAZINE [Concomitant]
     Indication: NAUSEA
     Route: 048
  15. TYLOX [Concomitant]
     Indication: PAIN
     Route: 048

REACTIONS (4)
  - DYSPNOEA EXERTIONAL [None]
  - FLUID OVERLOAD [None]
  - JOINT STIFFNESS [None]
  - OEDEMA PERIPHERAL [None]
